FAERS Safety Report 11291363 (Version 1)
Quarter: 2015Q3

REPORT INFORMATION
  Report Type: Spontaneous
  Country: US (occurrence: None)
  Receive Date: 20150720
  Receipt Date: 20150720
  Transmission Date: 20151125
  Serious: Yes (Other)
  Sender: FDA-Public Use
  Company Number: TPU2015-00352

PATIENT
  Age: 67 Year
  Sex: Female
  Weight: 81.65 kg

DRUGS (6)
  1. DOXEPIN (DOXEPIN) [Concomitant]
  2. FLEXERIL [Concomitant]
     Active Substance: CYCLOBENZAPRINE HYDROCHLORIDE
  3. PLAVIX [Concomitant]
     Active Substance: CLOPIDOGREL BISULFATE
  4. LYRICA [Concomitant]
     Active Substance: PREGABALIN
  5. LIDOCAINE PATCH 5% (QUALITEST) (LIDOCAINE PATCH 5%) (5 PERCENT, POULTICE OR PATCH) [Suspect]
     Active Substance: LIDOCAINE
     Indication: BACK PAIN
     Dosage: 3 PLASTER; 1 IN 1 CYCLICAL
     Route: 061
     Dates: start: 201411
  6. CYMBALTA [Concomitant]
     Active Substance: DULOXETINE HYDROCHLORIDE

REACTIONS (2)
  - Transient ischaemic attack [None]
  - Spinal laminectomy [None]

NARRATIVE: CASE EVENT DATE: 2014
